FAERS Safety Report 7655340-X (Version None)
Quarter: 2011Q3

REPORT INFORMATION
  Report Type: 
  Country: None (occurrence: None)
  Receive Date: 20110804
  Receipt Date: 20110720
  Transmission Date: 20111222
  Serious: Yes (Hospitalization, Other)
  Sender: FDA-Public Use
  Company Number: US-ELI_LILLY_AND_COMPANY-US201007005816

PATIENT
  Sex: Female

DRUGS (7)
  1. FORTEO [Suspect]
     Dosage: 20 UG, DAILY (1/D)
     Route: 065
  2. CALCIUM ACETATE [Concomitant]
     Dosage: 600 MG, DAILY (1/D)
  3. FORTEO [Suspect]
     Dosage: 20 UG, DAILY (1/D)
     Route: 065
  4. FORTEO [Suspect]
     Dosage: 20 UG, DAILY (1/D)
     Route: 065
  5. FORTEO [Suspect]
     Dosage: 20 UG, DAILY (1/D)
     Route: 065
  6. CALCIUM ACETATE [Concomitant]
     Indication: MINERAL SUPPLEMENTATION
     Dosage: 1200 MG, DAILY (1/D)
  7. FORTEO [Suspect]
     Indication: OSTEOPOROSIS
     Dosage: 20 UG, DAILY (1/D)
     Route: 065
     Dates: start: 20100712

REACTIONS (14)
  - HYPOACUSIS [None]
  - NASOPHARYNGITIS [None]
  - ARTHRITIS [None]
  - SINUSITIS [None]
  - PARANASAL SINUS HYPERSECRETION [None]
  - LISTLESS [None]
  - HEADACHE [None]
  - MUSCULOSKELETAL DISCOMFORT [None]
  - ARTHRALGIA [None]
  - BACK PAIN [None]
  - FATIGUE [None]
  - BLOOD CALCIUM INCREASED [None]
  - HIP FRACTURE [None]
  - DIZZINESS [None]
